FAERS Safety Report 6845942-2 (Version None)
Quarter: 2010Q3

REPORT INFORMATION
  Report Type: 
  Country: None (occurrence: None)
  Receive Date: 20100715
  Receipt Date: 20070827
  Transmission Date: 20110219
  Serious: No
  Sender: FDA-Public Use
  Company Number: US-PFIZER INC-2007073121

PATIENT
  Sex: Female
  Weight: 59.09 kg

DRUGS (8)
  1. CHANTIX [Suspect]
     Indication: SMOKING CESSATION THERAPY
     Dates: start: 20070731, end: 20070826
  2. PROMETHAZINE [Suspect]
     Indication: NAUSEA
     Dates: start: 20070101
  3. ATENOLOL [Concomitant]
     Indication: HYPERTENSION
  4. LEVOXYL [Concomitant]
     Indication: THYROID DISORDER
  5. LIPITOR [Concomitant]
     Indication: ANGIOPATHY
  6. VITAMIN D [Concomitant]
  7. CLONAZEPAM [Concomitant]
  8. ACETYLSALICYLIC ACID [Concomitant]

REACTIONS (4)
  - ABNORMAL DREAMS [None]
  - FATIGUE [None]
  - HEADACHE [None]
  - NAUSEA [None]
